FAERS Safety Report 19335494 (Version 1)
Quarter: 2021Q2

REPORT INFORMATION
  Report Type: Spontaneous
  Country: US (occurrence: US)
  Receive Date: 20210529
  Receipt Date: 20210529
  Transmission Date: 20210717
  Serious: Yes (Other)
  Sender: FDA-Public Use
  Company Number: US-PURDUE-USA-2020-0229253

PATIENT
  Sex: Male

DRUGS (12)
  1. OXYCONTIN [Suspect]
     Active Substance: OXYCODONE HYDROCHLORIDE
     Indication: JOINT INJURY
     Dosage: UNK
     Route: 048
  2. OXYFAST [Suspect]
     Active Substance: OXYCODONE
     Indication: JOINT INJURY
     Dosage: UNK
     Route: 048
  3. OXY IR [Suspect]
     Active Substance: OXYCODONE HYDROCHLORIDE
     Indication: JOINT INJURY
  4. OXY IR [Suspect]
     Active Substance: OXYCODONE HYDROCHLORIDE
     Indication: JOINT INJURY
     Dosage: UNK
     Route: 048
  5. HYDROCODONE BITARTRATE AND ACETAMINOPHEN [Suspect]
     Active Substance: ACETAMINOPHEN\HYDROCODONE BITARTRATE
     Indication: JOINT INJURY
  6. BUTRANS [Suspect]
     Active Substance: BUPRENORPHINE
     Indication: JOINT INJURY
     Dosage: UNK
     Route: 062
  7. BUTRANS [Suspect]
     Active Substance: BUPRENORPHINE
     Indication: JOINT INJURY
  8. OXYCONTIN [Suspect]
     Active Substance: OXYCODONE HYDROCHLORIDE
     Indication: JOINT INJURY
  9. DILAUDID [Suspect]
     Active Substance: HYDROMORPHONE HYDROCHLORIDE
     Indication: JOINT INJURY
     Dosage: UNK
     Route: 048
  10. OXYFAST [Suspect]
     Active Substance: OXYCODONE
     Indication: JOINT INJURY
  11. HYDROCODONE BITARTRATE AND ACETAMINOPHEN [Suspect]
     Active Substance: ACETAMINOPHEN\HYDROCODONE BITARTRATE
     Indication: JOINT INJURY
     Dosage: UNK
     Route: 048
  12. DILAUDID [Suspect]
     Active Substance: HYDROMORPHONE HYDROCHLORIDE
     Indication: JOINT INJURY

REACTIONS (2)
  - Drug dependence [Unknown]
  - Overdose [Unknown]
